FAERS Safety Report 6608970-8 (Version None)
Quarter: 2010Q1

REPORT INFORMATION
  Report Type: 
  Country: None (occurrence: None)
  Receive Date: 20100301
  Receipt Date: 20100217
  Transmission Date: 20100710
  Serious: Yes (Hospitalization)
  Sender: FDA-Public Use
  Company Number: FR-PFIZER INC-2006010590

PATIENT
  Age: 75 Year
  Sex: Male
  Weight: 73 kg

DRUGS (14)
  1. SUNITINIB MALATE [Suspect]
     Indication: RENAL CANCER
     Dosage: 50 MG, 1X/DAY
     Route: 048
     Dates: start: 20051018
  2. LANTUS [Concomitant]
     Route: 042
     Dates: start: 20050927
  3. NICORANDIL [Concomitant]
     Dates: start: 20050927
  4. EUROBIOL [Concomitant]
     Route: 048
     Dates: start: 19980101
  5. TETRAZEPAM [Concomitant]
     Route: 048
     Dates: start: 19960101
  6. LEVOTHYROX [Concomitant]
     Route: 048
     Dates: start: 20040101
  7. NOVONORM [Concomitant]
     Route: 048
     Dates: start: 20030101
  8. ANDRACTIM [Concomitant]
     Route: 048
     Dates: start: 19960101
  9. RHINOFLUIMUCIL [Concomitant]
     Route: 048
     Dates: start: 19850101
  10. HEXAQUINE [Concomitant]
     Route: 048
     Dates: start: 19920101
  11. ATURGYL [Concomitant]
     Route: 048
     Dates: start: 19850101
  12. OMIX [Concomitant]
     Route: 048
     Dates: start: 20050927
  13. LANZOR [Concomitant]
     Route: 048
     Dates: start: 20040301
  14. CORTISAL [Concomitant]
     Dates: start: 20050927

REACTIONS (3)
  - ANGINA UNSTABLE [None]
  - ATRIOVENTRICULAR BLOCK FIRST DEGREE [None]
  - TROPONIN INCREASED [None]
